FAERS Safety Report 9138285 (Version 2)
Quarter: 2013Q2

REPORT INFORMATION
  Report Type: Spontaneous
  Country: US (occurrence: US)
  Receive Date: 20130305
  Receipt Date: 20130411
  Transmission Date: 20140414
  Serious: No
  Sender: FDA-Public Use
  Company Number: US-009507513-1303USA001223

PATIENT
  Age: 65 Year
  Sex: Male

DRUGS (2)
  1. JANUVIA [Suspect]
     Indication: DIABETES MELLITUS
     Dosage: 50 MG, QD
     Route: 048
     Dates: start: 20130226
  2. DIVALPROEX SODIUM [Concomitant]
     Dosage: 250 MG

REACTIONS (2)
  - Dizziness [Not Recovered/Not Resolved]
  - Sleep disorder [Unknown]
